FAERS Safety Report 21156318 (Version 1)
Quarter: 2022Q3

REPORT INFORMATION
  Report Type: Spontaneous
  Country: US (occurrence: None)
  Receive Date: 20220729
  Receipt Date: 20220729
  Transmission Date: 20221027
  Serious: Yes (Other)
  Sender: FDA-Public Use
  Company Number: None

PATIENT
  Age: 33 Year
  Sex: Female
  Weight: 54 kg

DRUGS (9)
  1. CIPROFLOXACIN [Suspect]
     Active Substance: CIPROFLOXACIN
     Indication: Perichondritis
     Dosage: OTHER QUANTITY : 1 TABLET(S);?FREQUENCY : EVERY 12 HOURS;?
     Route: 048
     Dates: start: 20220719, end: 20220723
  2. Budesonide (local, oral suspension 20mg q24) [Concomitant]
  3. Protonix 40mg q24 [Concomitant]
  4. vyvanse 40mg q24 [Concomitant]
  5. gabapentin 100mg q24 [Concomitant]
  6. zolpidem 2.5-5mg qHOS PRN [Concomitant]
  7. Magnesium 500mg q24 [Concomitant]
  8. Melatonin 3-5mg qHOS PRN [Concomitant]
  9. fish oil 1250mg q24 (most days) [Concomitant]

REACTIONS (11)
  - Electrocardiogram QT prolonged [None]
  - Extrasystoles [None]
  - Ventricular extrasystoles [None]
  - Supraventricular extrasystoles [None]
  - Pain in extremity [None]
  - Arthralgia [None]
  - Myalgia [None]
  - Muscular weakness [None]
  - Bone pain [None]
  - Tendon pain [None]
  - Arthralgia [None]

NARRATIVE: CASE EVENT DATE: 20220724
